FAERS Safety Report 8162883-1 (Version None)
Quarter: 2012Q1

REPORT INFORMATION
  Report Type: 
  Country: None (occurrence: None)
  Receive Date: 20120221
  Receipt Date: 20120210
  Transmission Date: 20120608
  Serious: Yes (Death, Hospitalization, Other)
  Sender: FDA-Public Use
  Company Number: ADR-2011-11813

PATIENT
  Age: 44 Year
  Sex: Female

DRUGS (2)
  1. LIORESAL [Suspect]
     Indication: MULTIPLE SCLEROSIS
     Dosage: SEE B5
  2. LIORESAL [Suspect]
     Indication: MUSCLE SPASTICITY
     Dosage: SEE B5

REACTIONS (14)
  - COGNITIVE DISORDER [None]
  - CACHEXIA [None]
  - PNEUMONIA [None]
  - SUICIDE ATTEMPT [None]
  - URINARY TRACT INFECTION [None]
  - DEVICE MALFUNCTION [None]
  - DISORIENTATION [None]
  - SUICIDAL IDEATION [None]
  - MULTIPLE SCLEROSIS [None]
  - CONFUSIONAL STATE [None]
  - SPASTIC PARALYSIS [None]
  - ANXIETY [None]
  - MENTAL DISORDER [None]
  - DISEASE RECURRENCE [None]
